FAERS Safety Report 5519062-3 (Version None)
Quarter: 2007Q4

REPORT INFORMATION
  Report Type: 
  Country: None (occurrence: None)
  Receive Date: 20071116
  Receipt Date: 20071107
  Transmission Date: 20080405
  Serious: Yes (Death, Hospitalization)
  Sender: FDA-Public Use
  Company Number: JP-JNJFOC-20071007071

PATIENT
  Sex: Female
  Weight: 50 kg

DRUGS (14)
  1. REMICADE [Suspect]
     Route: 042
  2. REMICADE [Suspect]
     Dosage: 14 INFUSIONS ON UNKOWN DATES
     Route: 042
  3. REMICADE [Suspect]
     Indication: RHEUMATOID ARTHRITIS
     Route: 042
  4. RHEUMATREX [Suspect]
     Indication: RHEUMATOID ARTHRITIS
     Route: 048
  5. LIMETHASON [Concomitant]
     Indication: RHEUMATOID ARTHRITIS
     Route: 042
  6. INDOMETHACIN [Concomitant]
     Indication: RHEUMATOID ARTHRITIS
     Route: 054
  7. D-ALFA [Concomitant]
     Indication: OSTEOPOROSIS
     Dosage: DOSAGE 1RG ORAL
     Route: 048
  8. LASKARTON [Concomitant]
     Indication: OSTEOPOROSIS
     Route: 058
  9. DIDRONAL [Concomitant]
     Indication: OSTEOPOROSIS
     Dosage: DOSAGE 200MG/2WEEKS FOR 10 WEEKS
     Route: 048
  10. SELBEX [Concomitant]
     Indication: GASTRITIS
     Dosage: DOSAGE 3DF ORAL
     Route: 048
  11. SILECE [Concomitant]
     Indication: INSOMNIA
     Route: 048
  12. HYDRA-ZIDE [Concomitant]
     Indication: ANTIBIOTIC PROPHYLAXIS
     Dosage: DOSAGE 300MG, 100MG
     Route: 048
  13. CELECOX [Concomitant]
     Indication: RHEUMATOID ARTHRITIS
     Route: 048
  14. PREDONINE [Concomitant]
     Indication: RHEUMATOID ARTHRITIS

REACTIONS (3)
  - BONE MARROW FAILURE [None]
  - NASOPHARYNGITIS [None]
  - PNEUMONIA [None]
